FAERS Safety Report 22085947 (Version 2)
Quarter: 2023Q1

REPORT INFORMATION
  Report Type: Spontaneous
  Country: DE (occurrence: DE)
  Receive Date: 20230310
  Receipt Date: 20230324
  Transmission Date: 20230418
  Serious: Yes (Other)
  Sender: FDA-Public Use
  Company Number: DE-ROCHE-3299431

PATIENT
  Age: 57 Year
  Sex: Male

DRUGS (32)
  1. DEXAMETHASONE [Suspect]
     Active Substance: DEXAMETHASONE
     Indication: Diffuse large B-cell lymphoma
     Dosage: FOURTH LINE WITH RITUXIMAB AND POLATUZUMAB SECOND LINE WITH RITUXIMAB
     Route: 065
     Dates: start: 20211117, end: 20211230
  2. CYTARABINE [Suspect]
     Active Substance: CYTARABINE
     Indication: Diffuse large B-cell lymphoma
     Dosage: FOURTH LINE WITH RITUXIMAB AND POLATUZUMAB SECOND LINE WITH RITUXIMAB
     Route: 065
     Dates: start: 20211117, end: 20211230
  3. DOXORUBICIN [Suspect]
     Active Substance: DOXORUBICIN
     Indication: Diffuse large B-cell lymphoma
     Dosage: FIRST LINE WITH RITXUXIMAB 4 TIMES
     Route: 065
     Dates: start: 20210226, end: 20211015
  4. DOXORUBICIN [Suspect]
     Active Substance: DOXORUBICIN
     Dosage: SECOND LINE WITH DHAOX 17/NOV/2021 TO 30/DEC/2021
     Route: 065
     Dates: start: 20211117, end: 20211230
  5. DOXORUBICIN [Suspect]
     Active Substance: DOXORUBICIN
     Dosage: FOURTH LINE WITH RITUXIMAB AND POLATUZUMAB 03/NOV/2022 TO 22/JAN/2023
     Route: 065
     Dates: start: 20221103, end: 20230122
  6. POLATUZUMAB VEDOTIN [Suspect]
     Active Substance: POLATUZUMAB VEDOTIN
     Indication: Diffuse large B-cell lymphoma
     Dosage: FOURTH LINE WITH RITUXIMAB AND BENDAMUSTINE
     Route: 065
     Dates: start: 20221103, end: 20230122
  7. BLEOMYCIN [Suspect]
     Active Substance: BLEOMYCIN SULFATE
     Indication: Diffuse large B-cell lymphoma
     Dosage: FOURTH LINE WITH RITUXIMAB AND POLATUZUMABSECOND LINE WITH RITUXIMABFIRST LINE WITH RITXUXIMAB
     Route: 065
     Dates: start: 20210226, end: 20211015
  8. CYCLOPHOSPHAMIDE [Suspect]
     Active Substance: CYCLOPHOSPHAMIDE
     Indication: Diffuse large B-cell lymphoma
     Dosage: FIRST LINE WITH RITXUXIMAB 4 TIMES
     Route: 065
     Dates: start: 20210226, end: 20211015
  9. CYCLOPHOSPHAMIDE [Suspect]
     Active Substance: CYCLOPHOSPHAMIDE
     Dosage: SECOND LINE WITH DHAOX 17/NOV/2021 TO 30/DEC/2021
     Route: 065
     Dates: start: 20211117, end: 20211230
  10. CYCLOPHOSPHAMIDE [Suspect]
     Active Substance: CYCLOPHOSPHAMIDE
     Dosage: FOURTH LINE WITH RITUXIMAB AND POLATUZUMAB 03/NOV/2022 TO 22/JAN/2023
     Route: 065
     Dates: start: 20221103, end: 20230122
  11. PREDNISONE [Suspect]
     Active Substance: PREDNISONE
     Indication: Diffuse large B-cell lymphoma
     Dosage: FIRST LINE WITH RITXUXIMAB WITH 4 TIMES
     Route: 065
     Dates: start: 20210226, end: 20211015
  12. PREDNISONE [Suspect]
     Active Substance: PREDNISONE
     Dosage: FOURTH LINE WITH RITUXIMAB AND POLATUZUMAB 03/NOV/2022 TO 22/JAN/2023
     Route: 065
     Dates: start: 20221103, end: 20230122
  13. PREDNISONE [Suspect]
     Active Substance: PREDNISONE
     Dosage: SECOND LINE WITH RITUXIMAB, SECOND LINE WITH DHAOX 17/NOV/2021 TO 30/DEC/2021
     Route: 065
     Dates: start: 20211117, end: 20211230
  14. RITUXIMAB [Suspect]
     Active Substance: RITUXIMAB
     Indication: Diffuse large B-cell lymphoma
     Route: 065
     Dates: start: 20210226, end: 20211015
  15. RITUXIMAB [Suspect]
     Active Substance: RITUXIMAB
     Route: 065
     Dates: start: 20221103, end: 20230122
  16. RITUXIMAB [Suspect]
     Active Substance: RITUXIMAB
     Route: 065
     Dates: start: 20211117, end: 20221230
  17. VINDESINE [Suspect]
     Active Substance: VINDESINE
     Indication: Diffuse large B-cell lymphoma
     Dosage: SECOND LINE WITH RITUXIMAB FIRST LINE WITH RITXUXIMAB, WITH RITUXIMAB 4 TIMES
     Route: 065
     Dates: start: 20210226, end: 20211015
  18. OXALIPLATIN [Suspect]
     Active Substance: OXALIPLATIN
     Indication: Diffuse large B-cell lymphoma
     Dosage: SECOND LINE WITH DHAOX 17/NOV/2021 TO 30/DEC/2021
     Route: 065
     Dates: start: 20211117, end: 20211230
  19. OXALIPLATIN [Suspect]
     Active Substance: OXALIPLATIN
     Dosage: FOURTH LINE WITH RITUXIMAB AND POLATUZUMAB 03/NOV/2022 TO 22/JAN/2023
     Route: 065
     Dates: start: 20211103, end: 20230122
  20. OXALIPLATIN [Suspect]
     Active Substance: OXALIPLATIN
     Dosage: FIRST LINE THERAPY WITH RITUXIMAB 4 TIMES 26/FEB/2021 TO 15/OCT/2021
     Route: 065
     Dates: start: 20210226, end: 20211015
  21. BENDAMUSTINE [Suspect]
     Active Substance: BENDAMUSTINE
     Indication: Diffuse large B-cell lymphoma
     Dosage: FOURTH LINE WITH RITUXIMAB AND POLATUZUMAB SECOND LINE WITH RITUXIMAB
     Route: 065
     Dates: start: 20221103, end: 20230122
  22. ETOPOSIDE [Suspect]
     Active Substance: ETOPOSIDE
     Indication: Diffuse large B-cell lymphoma
     Dosage: WITH RITUXIMAB IFOSFAMIDE AND 4 TIMES SECOND LINE WITH DHAOX 17/NOV/2021 TO 30/DEC/2021 FOURTH LINE
     Route: 065
     Dates: start: 20210226, end: 20211015
  23. ETOPOSIDE [Suspect]
     Active Substance: ETOPOSIDE
     Dosage: WITH RITUXIMAB IFOSFAMIDE AND 4 TIMES SECOND LINE WITH DHAOX 17/NOV/2021 TO 30/DEC/2021
     Route: 065
     Dates: start: 20211117, end: 20211230
  24. ETOPOSIDE [Suspect]
     Active Substance: ETOPOSIDE
     Dosage: FOURTH LINE WITH POLATUZUMAB AND BENDAMUSTINE 03/NOV/2022 TO 22/JAN/2023
     Route: 065
     Dates: start: 20221103, end: 20230122
  25. ADRIAMYCIN [Suspect]
     Active Substance: DOXORUBICIN HYDROCHLORIDE
     Indication: Diffuse large B-cell lymphoma
     Route: 065
     Dates: start: 20210226, end: 20211015
  26. IFOSFAMIDE [Suspect]
     Active Substance: IFOSFAMIDE
     Indication: Diffuse large B-cell lymphoma
     Route: 065
     Dates: start: 20210226, end: 20211015
  27. IFOSFAMIDE [Suspect]
     Active Substance: IFOSFAMIDE
     Dosage: WITH RITUXIMAB ETOPOSIDE AND 4 TIMES SECOND LINE WITH DHAOX 17/NOV/2021 TO 30/DEC/2021
     Route: 065
     Dates: start: 20211117, end: 20211230
  28. IFOSFAMIDE [Suspect]
     Active Substance: IFOSFAMIDE
     Dosage: FOURTH LINE WITH POLATUZUMAB AND BENDAMUSTINE 03/NOV/2022 TO 22/JAN/2023
     Route: 065
     Dates: start: 20221103, end: 20230122
  29. METHOTREXATE [Suspect]
     Active Substance: METHOTREXATE
     Indication: Diffuse large B-cell lymphoma
     Route: 065
     Dates: start: 20210226, end: 20211015
  30. METHOTREXATE [Suspect]
     Active Substance: METHOTREXATE
     Dosage: WITH RITUXIMAB 2 TIMES SECOND LINE WITH DHAOX 17/NOV/2021 TO 30/DEC/2021
     Route: 065
     Dates: start: 20211117, end: 20211230
  31. METHOTREXATE [Suspect]
     Active Substance: METHOTREXATE
     Dosage: FOURTH LINE WITH POLATUZUMAB AND BENDAMUSTINE 03/NOV/2022 TO 22/JAN/2023
     Route: 065
     Dates: start: 20221103, end: 20230122
  32. VINCRISTINE [Suspect]
     Active Substance: VINCRISTINE
     Indication: Diffuse large B-cell lymphoma
     Route: 065
     Dates: start: 20210226, end: 20211015

REACTIONS (1)
  - Lymphoma [Not Recovered/Not Resolved]
